FAERS Safety Report 8205268-1 (Version None)
Quarter: 2012Q1

REPORT INFORMATION
  Report Type: 
  Country: None (occurrence: None)
  Receive Date: 20120313
  Receipt Date: 20120312
  Transmission Date: 20120608
  Serious: No
  Sender: FDA-Public Use
  Company Number: US-PFIZER INC-K201100688

PATIENT
  Age: 31 Year
  Sex: Female

DRUGS (7)
  1. TRAMADOL HCL [Concomitant]
     Dosage: UNK
     Dates: start: 20080101
  2. PERCOCET [Concomitant]
     Dosage: UNK
  3. DAYPRO [Concomitant]
     Dosage: UNK
     Dates: start: 20080101
  4. SKELAXIN [Suspect]
     Indication: INTERVERTEBRAL DISC DEGENERATION
     Dosage: UNK
     Dates: start: 20080101
  5. EXCEDRIN [Concomitant]
     Indication: HEADACHE
     Dosage: UNK
  6. DEMEROL [Concomitant]
     Dosage: UNK
  7. NAPROXEN (ALEVE) [Concomitant]
     Indication: HEADACHE
     Dosage: UNK

REACTIONS (3)
  - FAT TISSUE INCREASED [None]
  - ALOPECIA [None]
  - ACNE [None]
